FAERS Safety Report 25406171 (Version 2)
Quarter: 2025Q2

REPORT INFORMATION
  Report Type: Report from Study
  Country: US (occurrence: US)
  Receive Date: 20250606
  Receipt Date: 20250626
  Transmission Date: 20250716
  Serious: Yes (Other)
  Sender: MALLINCKRODT
  Company Number: US-MALLINCKRODT-MNK202503297

PATIENT
  Age: 35 Year
  Sex: Female

DRUGS (1)
  1. CORTICOTROPIN [Suspect]
     Active Substance: CORTICOTROPIN
     Indication: Rheumatoid arthritis
     Dosage: 80 UNITS
     Route: 058
     Dates: start: 20181228

REACTIONS (8)
  - Therapeutic procedure [Unknown]
  - COVID-19 [Unknown]
  - Ulcer [Recovering/Resolving]
  - Pruritus [Unknown]
  - Discomfort [Unknown]
  - Skin infection [Unknown]
  - Vomiting [Unknown]
  - Decreased appetite [Recovering/Resolving]

NARRATIVE: CASE EVENT DATE: 20250528
